FAERS Safety Report 6877285-5 (Version None)
Quarter: 2010Q3

REPORT INFORMATION
  Report Type: 
  Country: None (occurrence: None)
  Receive Date: 20100716
  Receipt Date: 20100707
  Transmission Date: 20110219
  Serious: Yes (Hospitalization)
  Sender: FDA-Public Use
  Company Number: WSDF_00634

PATIENT
  Sex: Male
  Weight: 81.6 kg

DRUGS (1)
  1. WINRHO SDF LIQUID [Suspect]
     Indication: IDIOPATHIC THROMBOCYTOPENIC PURPURA
     Dosage: (69.85 ?G/KG TOTAL INTRAVENOUS)
     Route: 042
     Dates: start: 20061113, end: 20061113

REACTIONS (4)
  - HAEMOGLOBIN DECREASED [None]
  - HAEMOGLOBINURIA [None]
  - HAEMOLYSIS [None]
  - OVERDOSE [None]
